FAERS Safety Report 6175674-8 (Version None)
Quarter: 2009Q2

REPORT INFORMATION
  Report Type: 
  Country: None (occurrence: None)
  Receive Date: 20090429
  Receipt Date: 20090409
  Transmission Date: 20091009
  Serious: Yes (Other)
  Sender: FDA-Public Use
  Company Number: 09-007

PATIENT
  Sex: Male

DRUGS (1)
  1. DORZOLAMIDE HCL AND TIMOLOL MALEATE [Suspect]
     Indication: GLAUCOMA
     Route: 047

REACTIONS (3)
  - ADVERSE EVENT [None]
  - EYE INFLAMMATION [None]
  - OCULAR HYPERAEMIA [None]
